FAERS Safety Report 16347910 (Version 1)
Quarter: 2019Q2

REPORT INFORMATION
  Report Type: Report from Study
  Country: None (occurrence: BE)
  Receive Date: 20190523
  Receipt Date: 20190523
  Transmission Date: 20190711
  Serious: Yes (Death)
  Sender: FDA-Public Use
  Company Number: BE-ABBVIE-19S-013-2791347-00

PATIENT
  Sex: Male

DRUGS (9)
  1. DUODOPA [Suspect]
     Active Substance: CARBIDOPA\LEVODOPA
     Indication: PARKINSON^S DISEASE
     Dosage: MD=8ML??CD=3.2ML/HR DURING 16HRS ??ED=3ML
     Route: 050
     Dates: start: 20150518, end: 20150522
  2. STALEVO [Concomitant]
     Active Substance: CARBIDOPA\ENTACAPONE\LEVODOPA
     Dosage: FORM STRENGTH: 150MG/37.5MG/200MG; UNIT DOSE: 1 TABLET; RESCUE MEDICATION
  3. DUODOPA [Suspect]
     Active Substance: CARBIDOPA\LEVODOPA
     Dosage: DOSES CONTINUOUSLY MONITORED AND ADAPTED
     Route: 050
     Dates: start: 20150522, end: 20171213
  4. MIRAPEXIN [Concomitant]
     Active Substance: PRAMIPEXOLE
  5. AMANTAN [Concomitant]
     Indication: PRODUCT USED FOR UNKNOWN INDICATION
     Dates: start: 20170314
  6. MIRAPEXIN [Concomitant]
     Active Substance: PRAMIPEXOLE
     Indication: PARKINSON^S DISEASE
     Route: 048
  7. MIRAPEXIN [Concomitant]
     Active Substance: PRAMIPEXOLE
  8. DUODOPA [Suspect]
     Active Substance: CARBIDOPA\LEVODOPA
     Dosage: MD=8ML??CD=4ML/HR AM, 3.8ML/HR PM DURING 16HRS ??ED=3.5ML
     Route: 050
     Dates: start: 20171213
  9. STALEVO [Concomitant]
     Active Substance: CARBIDOPA\ENTACAPONE\LEVODOPA
     Indication: PARKINSON^S DISEASE
     Dosage: FORM STRENGTH: 150MG/37.5MG/200MG; UNIT DOSE: 1 TABLET
     Route: 048

REACTIONS (1)
  - Cerebral haemorrhage [Fatal]
